FAERS Safety Report 21144656 (Version 1)
Quarter: 2022Q3

REPORT INFORMATION
  Report Type: Spontaneous
  Country: US (occurrence: US)
  Receive Date: 20220728
  Receipt Date: 20220728
  Transmission Date: 20221026
  Serious: No
  Sender: FDA-Public Use
  Company Number: US-INCYTE CORPORATION-2022IN007114

PATIENT

DRUGS (2)
  1. JAKAFI [Suspect]
     Active Substance: RUXOLITINIB
     Indication: Myelofibrosis
     Dosage: 5 MILLIGRAM, TAKE 1 TABLET (5MG) EVERY MORNING AND 2 TABLETS (10MG) EVERY EVENING
     Route: 048
     Dates: start: 20210909
  2. JAKAFI [Suspect]
     Active Substance: RUXOLITINIB
     Dosage: 10 MILLIGRAM, TAKE 1 TABLET (5MG) EVERY MORNING AND 2 TABLETS (10MG) EVERY EVENING
     Route: 048

REACTIONS (1)
  - Pain [Unknown]
